FAERS Safety Report 12357742 (Version 1)
Quarter: 2016Q2

REPORT INFORMATION
  Report Type: Spontaneous
  Country: US (occurrence: US)
  Receive Date: 20160512
  Receipt Date: 20160512
  Transmission Date: 20160815
  Serious: No
  Sender: FDA-Public Use
  Company Number: US-TEVA-653690ACC

PATIENT
  Age: 37 Year
  Sex: Female
  Weight: 69.01 kg

DRUGS (2)
  1. PENICILLIN [Concomitant]
     Active Substance: PENICILLIN
     Indication: ESCHERICHIA INFECTION
  2. PARAGARD T 380A [Suspect]
     Active Substance: COPPER
     Indication: CONTRACEPTION
     Dates: start: 20150324

REACTIONS (11)
  - Fungal infection [Recovered/Resolved]
  - Vaginal discharge [Not Recovered/Not Resolved]
  - Blood urine present [Recovered/Resolved]
  - Flatulence [Recovered/Resolved]
  - Abdominal distension [Recovered/Resolved]
  - Vulvovaginal discomfort [Recovered/Resolved]
  - Escherichia test positive [Not Recovered/Not Resolved]
  - Proctalgia [Recovered/Resolved]
  - Menorrhagia [Not Recovered/Not Resolved]
  - Dysmenorrhoea [Not Recovered/Not Resolved]
  - Vulvovaginal burning sensation [Recovered/Resolved]

NARRATIVE: CASE EVENT DATE: 20150324
